FAERS Safety Report 6202739-4 (Version None)
Quarter: 2009Q2

REPORT INFORMATION
  Report Type: 
  Country: None (occurrence: None)
  Receive Date: 20090526
  Receipt Date: 20090522
  Transmission Date: 20091009
  Serious: Yes (Life-Threatening)
  Sender: FDA-Public Use
  Company Number: PHHY2009ES20183

PATIENT
  Age: 72 Year
  Sex: Female

DRUGS (1)
  1. EUCREAS [Suspect]
     Indication: DIABETES MELLITUS
     Dosage: 50/850 MG 1 TABLET EVERY 12 HOURS
     Route: 048
     Dates: start: 20090515, end: 20090516

REACTIONS (3)
  - LARYNGEAL OEDEMA [None]
  - PHARYNGEAL INFLAMMATION [None]
  - RESPIRATORY DISORDER [None]
